FAERS Safety Report 17143038 (Version 2)
Quarter: 2022Q1

REPORT INFORMATION
  Report Type: Spontaneous
  Country: US (occurrence: US)
  Receive Date: 20191211
  Receipt Date: 20220112
  Transmission Date: 20220423
  Serious: Yes (Other)
  Sender: FDA-Public Use
  Company Number: US-NOVARTISPH-NVSC2019US065989

PATIENT
  Sex: Female

DRUGS (5)
  1. COSENTYX [Suspect]
     Active Substance: SECUKINUMAB
     Indication: Product used for unknown indication
     Dosage: 300 MG/KG, Q4W
     Route: 065
     Dates: start: 20181012, end: 20190716
  2. COSENTYX [Suspect]
     Active Substance: SECUKINUMAB
     Dosage: UNK, UNKNOWN
     Route: 065
     Dates: start: 20191101
  3. COSENTYX [Suspect]
     Active Substance: SECUKINUMAB
     Dosage: 300 MG/KG
     Route: 065
     Dates: start: 20181012, end: 20211007
  4. ASPIRIN [Concomitant]
     Active Substance: ASPIRIN
     Indication: Psoriatic arthropathy
     Dosage: UNK UNK, UNKNOWN
     Route: 065
  5. ASPERCREME NOS [Concomitant]
     Active Substance: MENTHOL\TROLAMINE SALICYLATE
     Indication: Product used for unknown indication
     Dosage: UNK
     Route: 065

REACTIONS (2)
  - Osteoarthritis [Unknown]
  - Tooth abscess [Unknown]

NARRATIVE: CASE EVENT DATE: 20190701
